FAERS Safety Report 24015184 (Version 3)
Quarter: 2024Q3

REPORT INFORMATION
  Report Type: Spontaneous
  Country: GB (occurrence: GB)
  Receive Date: 20240626
  Receipt Date: 20240906
  Transmission Date: 20241016
  Serious: Yes (Hospitalization, Other)
  Sender: AEGERION
  Company Number: GB-AMRYT PHARMACEUTICALS DAC-AEGR007214

PATIENT

DRUGS (3)
  1. LOMITAPIDE [Suspect]
     Active Substance: LOMITAPIDE
     Indication: Familial hypertriglyceridaemia
     Dosage: 5 MILLIGRAM, QD
     Route: 048
     Dates: start: 20230927
  2. LOMITAPIDE [Suspect]
     Active Substance: LOMITAPIDE
     Dosage: 10 MILLIGRAM, QD
     Route: 048
     Dates: start: 20240117
  3. LOMITAPIDE [Suspect]
     Active Substance: LOMITAPIDE
     Dosage: 15 MILLIGRAM, QD
     Dates: start: 20240718

REACTIONS (4)
  - Pancreatitis acute [Recovered/Resolved]
  - Blood triglycerides increased [Recovering/Resolving]
  - Treatment noncompliance [Recovered/Resolved]
  - Off label use [Not Recovered/Not Resolved]

NARRATIVE: CASE EVENT DATE: 20230927
